FAERS Safety Report 10166829 (Version 2)
Quarter: 2014Q2

REPORT INFORMATION
  Report Type: Spontaneous
  Country: US (occurrence: None)
  Receive Date: 20140508
  Receipt Date: 20140612
  Transmission Date: 20141212
  Serious: Yes (Hospitalization)
  Sender: FDA-Public Use
  Company Number: UTC-048200

PATIENT
  Age: 45 Year
  Sex: Female
  Weight: 49.9 kg

DRUGS (3)
  1. TYVASO [Suspect]
     Indication: COR PULMONALE CHRONIC
     Dosage: 18-54 MCG (4 IN 1 D), INHALATION
     Route: 055
     Dates: start: 20140404
  2. REVATIO (SILDENAFIL CITRATE) (UNKNOWN) [Concomitant]
  3. LETAIRIS (AMBRISENTAN) (UNKNOWN) [Concomitant]

REACTIONS (4)
  - Pyrexia [None]
  - Respiratory disorder [None]
  - Chest discomfort [None]
  - Streptococcal infection [None]
